FAERS Safety Report 17060035 (Version 1)
Quarter: 2019Q4

REPORT INFORMATION
  Report Type: Spontaneous
  Country: ID (occurrence: ID)
  Receive Date: 20191121
  Receipt Date: 20191121
  Transmission Date: 20200122
  Serious: Yes (Hospitalization, Other)
  Sender: FDA-Public Use
  Company Number: ID-BAYER-2019-194693

PATIENT
  Age: 72 Year
  Sex: Male

DRUGS (2)
  1. NEXAVAR [Suspect]
     Active Substance: SORAFENIB
     Indication: HEPATOCELLULAR CARCINOMA
     Dosage: 400 MG, BID (2 X 400 MG)
     Route: 048
     Dates: start: 20191003, end: 20191018
  2. NEXAVAR [Suspect]
     Active Substance: SORAFENIB
     Indication: HEPATOCELLULAR CARCINOMA
     Dosage: UNK
     Dates: start: 2019, end: 2019

REACTIONS (13)
  - Pruritus [None]
  - Loss of consciousness [None]
  - Decreased appetite [None]
  - Diarrhoea [None]
  - Asthenia [None]
  - Abdominal pain [None]
  - Weight decreased [None]
  - Ocular icterus [None]
  - Salivary hypersecretion [None]
  - Haematemesis [None]
  - Yellow skin [None]
  - Blood bilirubin increased [None]
  - Product availability issue [None]

NARRATIVE: CASE EVENT DATE: 201910
